FAERS Safety Report 7299586-1 (Version None)
Quarter: 2011Q1

REPORT INFORMATION
  Report Type: 
  Country: None (occurrence: None)
  Receive Date: 20110209
  Receipt Date: 20110127
  Transmission Date: 20110831
  Serious: Yes (Other)
  Sender: FDA-Public Use
  Company Number: 2011SP004288

PATIENT
  Age: 57 Year
  Sex: Female

DRUGS (5)
  1. PEG-INTRON [Suspect]
     Indication: HEPATITIS C
     Dosage: SBDE
     Route: 059
     Dates: start: 20100628
  2. FOLIC ACID [Concomitant]
  3. AMYTRIPTILINE [Concomitant]
  4. PROPRANOLOL [Concomitant]
  5. DIAZEPAM [Concomitant]

REACTIONS (21)
  - PAIN IN EXTREMITY [None]
  - NODULE [None]
  - DRY SKIN [None]
  - PYREXIA [None]
  - ASTHENIA [None]
  - HYPOTHYROIDISM [None]
  - ABDOMINAL PAIN [None]
  - BACK PAIN [None]
  - NAIL DISORDER [None]
  - BLOOD ALKALINE PHOSPHATASE INCREASED [None]
  - GAMMA-GLUTAMYLTRANSFERASE INCREASED [None]
  - HEADACHE [None]
  - CHEST PAIN [None]
  - WHITE BLOOD CELL COUNT DECREASED [None]
  - ASPARTATE AMINOTRANSFERASE INCREASED [None]
  - CHILLS [None]
  - ALOPECIA [None]
  - PAIN [None]
  - RED BLOOD CELL COUNT DECREASED [None]
  - BLOOD CREATININE INCREASED [None]
  - HAEMATOMA [None]
